FAERS Safety Report 23433263 (Version 2)
Quarter: 2024Q2

REPORT INFORMATION
  Report Type: Spontaneous
  Country: JP (occurrence: JP)
  Receive Date: 20240123
  Receipt Date: 20240524
  Transmission Date: 20240716
  Serious: Yes (Death, Other)
  Sender: FDA-Public Use
  Company Number: JP-LUNDBECK-DKLU3050548

PATIENT
  Age: 3 Decade
  Sex: Female
  Weight: 62.1 kg

DRUGS (46)
  1. ASENAPINE MALEATE [Suspect]
     Active Substance: ASENAPINE MALEATE
     Indication: Product used for unknown indication
     Route: 065
  2. LEXAPRO [Suspect]
     Active Substance: ESCITALOPRAM OXALATE
     Indication: Product used for unknown indication
     Dosage: DOSE DESC: UNK, OVERDOSE, FORM: UNKNOWN
     Route: 048
  3. CHLORPHENIRAMINE [Suspect]
     Active Substance: CHLORPHENIRAMINE
     Indication: Product used for unknown indication
     Route: 048
  4. OLANZAPINE [Suspect]
     Active Substance: OLANZAPINE
     Indication: Product used for unknown indication
     Route: 048
  5. PEMOLINE [Suspect]
     Active Substance: PEMOLINE
     Indication: Product used for unknown indication
     Route: 048
  6. ALPRAZOLAM [Suspect]
     Active Substance: ALPRAZOLAM
     Indication: Product used for unknown indication
     Route: 048
  7. CHLORPROMAZINE HYDROCHLORIDE [Suspect]
     Active Substance: CHLORPROMAZINE HYDROCHLORIDE
     Indication: Product used for unknown indication
     Route: 048
  8. DIHYDROCODEINE PHOSPHATE [Suspect]
     Active Substance: DIHYDROCODEINE PHOSPHATE
     Indication: Product used for unknown indication
     Route: 048
  9. EPHEDRINE HYDROCHLORIDE [Suspect]
     Active Substance: EPHEDRINE HYDROCHLORIDE
     Indication: Product used for unknown indication
     Route: 048
  10. NORTRIPTYLINE HYDROCHLORIDE [Suspect]
     Active Substance: NORTRIPTYLINE HYDROCHLORIDE
     Indication: Product used for unknown indication
     Dosage: OVERDOSE: UNKNOWN DOSE
     Route: 048
  11. Pursennid [Concomitant]
     Indication: Product used for unknown indication
     Route: 065
  12. LASIX [Concomitant]
     Active Substance: FUROSEMIDE
     Indication: Product used for unknown indication
     Route: 065
  13. Ss Bron [Concomitant]
     Indication: Product used for unknown indication
     Route: 065
  14. CLONAZEPAM [Suspect]
     Active Substance: CLONAZEPAM
     Indication: Product used for unknown indication
     Route: 048
  15. BROMAZEPAM [Concomitant]
     Active Substance: BROMAZEPAM
     Indication: Product used for unknown indication
     Route: 065
  16. HERBALS [Concomitant]
     Active Substance: HERBALS
     Indication: Product used for unknown indication
     Route: 065
  17. PHENOBARBITAL [Concomitant]
     Active Substance: PHENOBARBITAL
     Indication: Product used for unknown indication
     Route: 065
  18. AMITRIPTYLINE [Concomitant]
     Active Substance: AMITRIPTYLINE
     Indication: Product used for unknown indication
     Route: 065
  19. MOSAPRIDE CITRATE [Concomitant]
     Active Substance: MOSAPRIDE CITRATE
     Indication: Product used for unknown indication
     Route: 065
  20. MADONNA [Concomitant]
     Indication: Product used for unknown indication
     Route: 065
  21. VOLTAREN [Concomitant]
     Active Substance: DICLOFENAC SODIUM
     Indication: Product used for unknown indication
     Route: 065
  22. VIBRAMYCIN [Concomitant]
     Active Substance: DOXYCYCLINE
     Indication: Product used for unknown indication
     Route: 065
  23. SULPIRIDE [Concomitant]
     Active Substance: SULPIRIDE
     Indication: Product used for unknown indication
     Route: 065
  24. METOCLOPRAMIDE [Concomitant]
     Active Substance: METOCLOPRAMIDE
     Indication: Product used for unknown indication
     Route: 065
  25. CHLORPROMAZINE [Suspect]
     Active Substance: CHLORPROMAZINE
     Indication: Product used for unknown indication
     Route: 048
  26. PYRETHIA [Concomitant]
     Active Substance: PROMETHAZINE HYDROCHLORIDE
     Indication: Product used for unknown indication
     Route: 065
  27. PHARMARIN [Concomitant]
     Indication: Product used for unknown indication
     Route: 065
  28. CHLORPHENIRAMINE MALEATE\DIHYDROCODEINE PHOSPHATE\METHYLEPHEDRINE HYDR [Suspect]
     Active Substance: CHLORPHENIRAMINE MALEATE\DIHYDROCODEINE PHOSPHATE\METHYLEPHEDRINE HYDROCHLORIDE, DL-
     Indication: Product used for unknown indication
     Route: 048
  29. CODEINE PHOSPHATE [Concomitant]
     Active Substance: CODEINE PHOSPHATE
     Indication: Product used for unknown indication
     Route: 065
  30. LOXOPROFEN [Concomitant]
     Active Substance: LOXOPROFEN
     Indication: Product used for unknown indication
     Route: 065
  31. AMOBARBITAL SODIUM [Concomitant]
     Active Substance: AMOBARBITAL SODIUM
     Indication: Product used for unknown indication
     Route: 065
  32. MAGNESIUM OXIDE [Concomitant]
     Active Substance: MAGNESIUM OXIDE
     Indication: Product used for unknown indication
     Route: 065
  33. PEMOLINE [Suspect]
     Active Substance: PEMOLINE
     Indication: Product used for unknown indication
     Route: 048
  34. LYRICA [Concomitant]
     Active Substance: PREGABALIN
     Indication: Product used for unknown indication
     Route: 065
  35. NAUZELIN [Concomitant]
     Active Substance: DOMPERIDONE
     Indication: Product used for unknown indication
     Route: 065
  36. BELSOMRA [Concomitant]
     Active Substance: SUVOREXANT
     Indication: Product used for unknown indication
     Route: 065
  37. Depas [Concomitant]
     Indication: Product used for unknown indication
     Route: 065
  38. BLONANSERIN [Suspect]
     Active Substance: BLONANSERIN
     Indication: Product used for unknown indication
     Route: 048
  39. FLUNITRAZEPAM [Concomitant]
     Active Substance: FLUNITRAZEPAM
     Indication: Product used for unknown indication
     Route: 065
  40. HALCION [Concomitant]
     Active Substance: TRIAZOLAM
     Indication: Product used for unknown indication
     Route: 065
  41. PENTOBARBITAL CALCIUM [Concomitant]
     Active Substance: PENTOBARBITAL CALCIUM
     Indication: Product used for unknown indication
     Route: 065
  42. DEXTROMETHORPHAN HYDROBROMIDE [Concomitant]
     Active Substance: DEXTROMETHORPHAN HYDROBROMIDE
     Indication: Product used for unknown indication
     Route: 065
  43. FLUTOPRAZEPAM [Concomitant]
     Active Substance: FLUTOPRAZEPAM
     Indication: Product used for unknown indication
     Route: 065
  44. Aneton [Concomitant]
     Indication: Product used for unknown indication
     Route: 065
  45. LORAZEPAM [Concomitant]
     Active Substance: LORAZEPAM
     Indication: Product used for unknown indication
     Route: 065
  46. ETHINYL ESTRADIOL\NORGESTREL [Concomitant]
     Active Substance: ETHINYL ESTRADIOL\NORGESTREL
     Indication: Product used for unknown indication
     Route: 065

REACTIONS (3)
  - Toxicity to various agents [Fatal]
  - Intentional overdose [Unknown]
  - Drug abuse [Unknown]
